FAERS Safety Report 6300298-9 (Version None)
Quarter: 2009Q3

REPORT INFORMATION
  Report Type: 
  Country: None (occurrence: None)
  Receive Date: 20090803
  Receipt Date: 20090723
  Transmission Date: 20100115
  Serious: Yes (Hospitalization)
  Sender: FDA-Public Use
  Company Number: 8049402

PATIENT
  Age: 25 Year
  Sex: Female

DRUGS (3)
  1. XYZAL [Suspect]
     Dosage: 1 DF 1/D PO
     Route: 048
     Dates: end: 20090214
  2. RHINOCORT [Suspect]
     Dosage: 1 DF 1/2D NAS
     Route: 045
     Dates: end: 20090214
  3. MUCORHINE [Suspect]
     Dosage: 1 DF 1/2D NAS
     Route: 045
     Dates: end: 20090214

REACTIONS (2)
  - ABORTION INDUCED [None]
  - DRUG EXPOSURE DURING PREGNANCY [None]
